FAERS Safety Report 23104225 (Version 1)
Quarter: 2023Q4

REPORT INFORMATION
  Report Type: Spontaneous
  Country: US (occurrence: None)
  Receive Date: 20231024
  Receipt Date: 20231024
  Transmission Date: 20240110
  Serious: Yes (Life-Threatening, Hospitalization)
  Sender: FDA-Public Use
  Company Number: None

PATIENT
  Age: 62 Year
  Sex: Male
  Weight: 87.75 kg

DRUGS (6)
  1. LISINOPRIL [Suspect]
     Active Substance: LISINOPRIL
     Indication: Hypertension
     Dosage: OTHER QUANTITY : 1 TABLET(S);?FREQUENCY : DAILY;?
     Route: 048
     Dates: start: 20230510, end: 20230820
  2. PROPRANOLOL [Concomitant]
     Active Substance: PROPRANOLOL HYDROCHLORIDE
  3. EZETIMIBE [Concomitant]
     Active Substance: EZETIMIBE
  4. LIVALO [Concomitant]
     Active Substance: PITAVASTATIN CALCIUM
  5. DULOXETINE [Concomitant]
     Active Substance: DULOXETINE
  6. VITAMIN D [Concomitant]
     Active Substance: VITAMIN D NOS

REACTIONS (7)
  - Loss of consciousness [None]
  - Lip swelling [None]
  - Fall [None]
  - Eye swelling [None]
  - Craniofacial fracture [None]
  - Headache [None]
  - Facial pain [None]

NARRATIVE: CASE EVENT DATE: 20230820
